FAERS Safety Report 20304979 (Version 1)
Quarter: 2022Q1

REPORT INFORMATION
  Report Type: Spontaneous
  Country: DE (occurrence: DE)
  Receive Date: 20220106
  Receipt Date: 20220106
  Transmission Date: 20220423
  Serious: Yes (Hospitalization)
  Sender: FDA-Public Use
  Company Number: DE-ADRED-07291-01

PATIENT
  Age: 49 Year
  Sex: Male

DRUGS (5)
  1. ACETAMINOPHEN [Suspect]
     Active Substance: ACETAMINOPHEN
     Indication: Product used for unknown indication
     Dosage: UNK
     Route: 065
  2. METAMIZOLE [Suspect]
     Active Substance: METAMIZOLE
     Indication: Product used for unknown indication
     Dosage: 500 MILLIGRAM PER MILLILITRE, BEI BEDARF, TROPFEN
     Route: 048
  3. BUDESONIDE [Concomitant]
     Active Substance: BUDESONIDE
     Dosage: 0.2 MILLIGRAM, BID, 0.2 MG, 2-0-2-0, DOSIERAEROSOL
     Route: 055
  4. ALLOPURINOL [Concomitant]
     Active Substance: ALLOPURINOL
     Dosage: 10 MILLIGRAM, QD, 10 MILLIGRAM, 1-0-0-0, TABLETTEN
     Route: 048
  5. PANTOPRAZOLE SODIUM [Concomitant]
     Active Substance: PANTOPRAZOLE SODIUM
     Dosage: 20 MILLIGRAM, BID, 20 MILLIGRAM, 1-0-1-0, TABLETTEN
     Route: 048

REACTIONS (4)
  - Headache [Unknown]
  - Tinnitus [Unknown]
  - Dysphonia [Unknown]
  - Product administration error [Unknown]

NARRATIVE: CASE EVENT DATE: 20201207
